FAERS Safety Report 6659067-2 (Version None)
Quarter: 2010Q1

REPORT INFORMATION
  Report Type: 
  Country: None (occurrence: None)
  Receive Date: 20100330
  Receipt Date: 20100318
  Transmission Date: 20100710
  Serious: Yes (Hospitalization, Other)
  Sender: FDA-Public Use
  Company Number: JP-PFIZER INC-2010035011

PATIENT
  Age: 58 Year
  Sex: Male

DRUGS (7)
  1. XALATAN [Suspect]
     Indication: GLAUCOMA
     Dosage: ONE DROP PER DAY
     Route: 047
     Dates: start: 20100201
  2. ITOROL [Concomitant]
     Indication: ANGINA PECTORIS
     Dosage: UNK
     Route: 048
     Dates: start: 20100312
  3. DILTIAZEM HYDROCHLORIDE [Concomitant]
     Indication: ANGINA PECTORIS
     Dosage: UNK
     Route: 048
     Dates: start: 20100312
  4. SEDIEL [Concomitant]
     Indication: ANXIETY
     Dosage: UNK
     Route: 048
     Dates: start: 20100312
  5. TIMOPTOL [Concomitant]
     Indication: GLAUCOMA
     Dosage: UNK
     Route: 031
     Dates: start: 20100201
  6. HYALEIN [Concomitant]
     Indication: PROPHYLAXIS
     Dosage: UNK
     Route: 031
     Dates: start: 20100201
  7. TRUSOPT [Concomitant]
     Indication: GLAUCOMA
     Dosage: UNK
     Route: 031
     Dates: start: 20100201

REACTIONS (4)
  - ANGINA PECTORIS [None]
  - DEPRESSION [None]
  - NERVOUSNESS [None]
  - PHOTOPSIA [None]
